FAERS Safety Report 10691366 (Version 1)
Quarter: 2015Q1

REPORT INFORMATION
  Report Type: Spontaneous
  Country: GB (occurrence: GB)
  Receive Date: 20150105
  Receipt Date: 20150105
  Transmission Date: 20150720
  Serious: Yes (Other)
  Sender: FDA-Public Use
  Company Number: GB-ACTAVIS-2014-28078

PATIENT
  Age: 24 Year
  Sex: Female
  Weight: 70 kg

DRUGS (3)
  1. PARACETAMOL [Concomitant]
     Active Substance: ACETAMINOPHEN
     Indication: PRODUCT USED FOR UNKNOWN INDICATION
     Dosage: UNK
     Route: 065
  2. STREPSILS /01541501/ [Concomitant]
     Active Substance: AMYLMETACRESOL\DICHLOROBENZYL ALCOHOL\LIDOCAINE
     Indication: PRODUCT USED FOR UNKNOWN INDICATION
     Dosage: UNK
     Route: 065
  3. SALBUTAMOL (UNKNOWN) [Suspect]
     Active Substance: ALBUTEROL
     Indication: ASTHMA
     Dosage: UNK
     Route: 055
     Dates: start: 20141212, end: 20141215

REACTIONS (5)
  - Tremor [Recovered/Resolved]
  - Back pain [Recovering/Resolving]
  - Dysphagia [Recovering/Resolving]
  - Eructation [Recovering/Resolving]
  - Oropharyngeal pain [Recovering/Resolving]

NARRATIVE: CASE EVENT DATE: 20141212
